FAERS Safety Report 8089208-4 (Version None)
Quarter: 2012Q1

REPORT INFORMATION
  Report Type: 
  Country: None (occurrence: None)
  Receive Date: 20120128
  Receipt Date: 20110627
  Transmission Date: 20120608
  Serious: No
  Sender: FDA-Public Use
  Company Number: US-ABBOTT-11P-163-0834749-00

PATIENT
  Sex: Male

DRUGS (5)
  1. PREDNISONE TAB [Suspect]
     Indication: COLITIS ULCERATIVE
  2. ASACOL [Concomitant]
     Indication: COLITIS ULCERATIVE
  3. HUMIRA [Suspect]
     Indication: COLITIS ULCERATIVE
     Dates: start: 20090101
  4. METOPROLOL TARTRATE [Concomitant]
     Indication: HEART VALVE INCOMPETENCE
  5. MULTAQ [Concomitant]
     Indication: ARRHYTHMIA

REACTIONS (4)
  - BACK PAIN [None]
  - SPINAL COMPRESSION FRACTURE [None]
  - BLOOD PARATHYROID HORMONE INCREASED [None]
  - BLOOD TESTOSTERONE DECREASED [None]
